FAERS Safety Report 16812802 (Version 1)
Quarter: 2019Q3

REPORT INFORMATION
  Report Type: Spontaneous
  Country: US (occurrence: US)
  Receive Date: 20190916
  Receipt Date: 20190916
  Transmission Date: 20191005
  Serious: No
  Sender: FDA-Public Use
  Company Number: US-JAZZ-2018-US-016842

PATIENT
  Age: 9 Year
  Sex: Female

DRUGS (2)
  1. ERWINAZE [Suspect]
     Active Substance: ASPARAGINASE ERWINIA CHRYSANTHEMI
     Indication: T-CELL LYMPHOMA
     Dosage: 2-3 DOSES; UNKNOWN DOSE
     Route: 030
     Dates: start: 2018, end: 2018
  2. ERWINAZE [Suspect]
     Active Substance: ASPARAGINASE ERWINIA CHRYSANTHEMI
     Dosage: UNKNOWN DOSE
     Route: 042
     Dates: start: 2018, end: 2018

REACTIONS (5)
  - Ammonia increased [Unknown]
  - Nausea [Unknown]
  - Dizziness [Unknown]
  - Vomiting [Unknown]
  - Headache [Unknown]

NARRATIVE: CASE EVENT DATE: 2018
